FAERS Safety Report 10803778 (Version 1)
Quarter: 2015Q1

REPORT INFORMATION
  Report Type: Spontaneous
  Country: PT (occurrence: PT)
  Receive Date: 20150217
  Receipt Date: 20150217
  Transmission Date: 20150721
  Serious: Yes (Hospitalization)
  Sender: FDA-Public Use
  Company Number: PT-MYLANLABS-2015M1004864

PATIENT

DRUGS (3)
  1. VENLAFAXINE [Suspect]
     Active Substance: VENLAFAXINE HYDROCHLORIDE
     Indication: DEPRESSION
     Route: 065
  2. FUCUS VESICULOSUS [Interacting]
     Active Substance: FUCUS VESICULOSUS
     Indication: WEIGHT INCREASED
     Dosage: SINCE, LAST YEAR
     Route: 065
  3. CENTELLA ASIATICA [Interacting]
     Active Substance: CENTELLA ASIATICA
     Indication: WEIGHT INCREASED
     Dosage: SINCE, LAST YEAR
     Route: 065

REACTIONS (4)
  - Drug interaction [Recovering/Resolving]
  - Cardiomyopathy acute [Recovering/Resolving]
  - Cardiac failure [Recovering/Resolving]
  - Interstitial lung disease [Recovering/Resolving]
